FAERS Safety Report 19459835 (Version 1)
Quarter: 2021Q2

REPORT INFORMATION
  Report Type: Spontaneous
  Country: KR (occurrence: KR)
  Receive Date: 20210625
  Receipt Date: 20210625
  Transmission Date: 20210717
  Serious: Yes (Hospitalization)
  Sender: FDA-Public Use
  Company Number: KR-JNJFOC-20210641979

PATIENT
  Age: 60 Year
  Sex: Male

DRUGS (2)
  1. DARZALEX [Suspect]
     Active Substance: DARATUMUMAB
     Indication: PLASMA CELL MYELOMA
     Dosage: 4TH LINE
     Route: 042
     Dates: start: 20190219
  2. DARZALEX [Suspect]
     Active Substance: DARATUMUMAB
     Dosage: CYCLE 2
     Route: 042
     Dates: end: 20190602

REACTIONS (4)
  - Lung opacity [Unknown]
  - Infusion related reaction [Unknown]
  - Cough [Unknown]
  - Pyrexia [Unknown]
